FAERS Safety Report 25016210 (Version 3)
Quarter: 2025Q2

REPORT INFORMATION
  Report Type: Report from Study
  Country: US (occurrence: US)
  Receive Date: 20250227
  Receipt Date: 20250407
  Transmission Date: 20250716
  Serious: No
  Sender: ABBVIE
  Company Number: US-ABBVIE-6118214

PATIENT
  Age: 49 Year
  Sex: Female
  Weight: 46.719 kg

DRUGS (7)
  1. RINVOQ [Suspect]
     Active Substance: UPADACITINIB
     Indication: Colitis ulcerative
     Dosage: FORM STRENGTH: 30 MG?FREQUENCY TEXT: EVERY MORNING
     Route: 048
     Dates: start: 20241020
  2. RINVOQ [Suspect]
     Active Substance: UPADACITINIB
     Indication: Colitis ulcerative
     Route: 048
     Dates: start: 20240728, end: 20241019
  3. RINVOQ [Suspect]
     Active Substance: UPADACITINIB
     Indication: Colitis ulcerative
     Route: 048
  4. ESCITALOPRAM [Concomitant]
     Active Substance: ESCITALOPRAM OXALATE
     Indication: Anxiety
     Dates: start: 202410
  5. ESCITALOPRAM [Concomitant]
     Active Substance: ESCITALOPRAM OXALATE
     Indication: Anxiety
  6. COVID-19 vaccine [Concomitant]
     Indication: COVID-19 immunisation
     Route: 030
  7. REFRESH TEARS [Concomitant]
     Active Substance: CARBOXYMETHYLCELLULOSE SODIUM
     Indication: Dry eye

REACTIONS (24)
  - Vitreous floaters [Recovering/Resolving]
  - Colitis ulcerative [Recovering/Resolving]
  - Faeces discoloured [Recovering/Resolving]
  - Gastrointestinal pain [Recovered/Resolved with Sequelae]
  - Sleep deficit [Recovered/Resolved with Sequelae]
  - Food allergy [Not Recovered/Not Resolved]
  - Influenza [Recovered/Resolved]
  - Pain [Recovered/Resolved with Sequelae]
  - Faeces hard [Unknown]
  - Defaecation urgency [Recovered/Resolved with Sequelae]
  - Pollakiuria [Recovered/Resolved with Sequelae]
  - Nausea [Recovered/Resolved with Sequelae]
  - Diarrhoea [Recovered/Resolved]
  - Nasopharyngitis [Recovered/Resolved]
  - Weight increased [Recovered/Resolved]
  - Frequent bowel movements [Recovering/Resolving]
  - Stress [Recovering/Resolving]
  - Defaecation urgency [Recovering/Resolving]
  - Blood iron decreased [Recovered/Resolved]
  - Lymphadenopathy [Not Recovered/Not Resolved]
  - Rhinorrhoea [Recovered/Resolved]
  - Oropharyngeal pain [Recovered/Resolved]
  - Pain [Recovered/Resolved]
  - Illness [Recovered/Resolved]

NARRATIVE: CASE EVENT DATE: 20240101
